FAERS Safety Report 6708935-1 (Version None)
Quarter: 2010Q2

REPORT INFORMATION
  Report Type: 
  Country: None (occurrence: None)
  Receive Date: 20100504
  Receipt Date: 20100422
  Transmission Date: 20101027
  Serious: Yes (Hospitalization, Other)
  Sender: FDA-Public Use
  Company Number: US-BAYER-200941202NA

PATIENT
  Age: 26 Year
  Sex: Female
  Weight: 79 kg

DRUGS (7)
  1. YASMIN [Suspect]
     Indication: CONTRACEPTION
     Route: 048
     Dates: start: 20040901, end: 20060501
  2. YASMIN [Suspect]
     Route: 048
     Dates: start: 20060901, end: 20070101
  3. BROMFED [Concomitant]
     Indication: DRUG USE FOR UNKNOWN INDICATION
     Route: 065
  4. FLONASE [Concomitant]
     Indication: DRUG USE FOR UNKNOWN INDICATION
     Route: 065
  5. AUGMENTIN '125' [Concomitant]
     Indication: SINUSITIS
     Route: 065
     Dates: start: 20070101
  6. LORTAB [Concomitant]
     Indication: DRUG USE FOR UNKNOWN INDICATION
     Route: 065
  7. PHENERGAN [Concomitant]
     Indication: DRUG USE FOR UNKNOWN INDICATION
     Route: 065

REACTIONS (7)
  - HEADACHE [None]
  - JUGULAR VEIN THROMBOSIS [None]
  - NAUSEA [None]
  - PHOTOPHOBIA [None]
  - SUPERIOR SAGITTAL SINUS THROMBOSIS [None]
  - TRANSVERSE SINUS THROMBOSIS [None]
  - VOMITING [None]
